FAERS Safety Report 8156052-9 (Version None)
Quarter: 2012Q1

REPORT INFORMATION
  Report Type: 
  Country: None (occurrence: None)
  Receive Date: 20120222
  Receipt Date: 20120210
  Transmission Date: 20120608
  Serious: Yes (Other)
  Sender: FDA-Public Use
  Company Number: ES-ELI_LILLY_AND_COMPANY-ES201202004103

PATIENT
  Sex: Female
  Weight: 68 kg

DRUGS (4)
  1. ALIMTA [Suspect]
     Indication: LUNG NEOPLASM MALIGNANT
     Dosage: UNK, EVERY 3 WEEKS
     Route: 042
     Dates: start: 20120208
  2. DAFLON                             /00426001/ [Concomitant]
     Indication: VARICOSE VEIN
     Dosage: 500 MG, QD
     Route: 048
     Dates: start: 20120101
  3. BONIVA [Concomitant]
     Indication: OSTEOPOROSIS
     Dosage: 150 MG, MONTHLY (1/M)
     Route: 048
  4. CALCIUM SANDOZ [Concomitant]
     Indication: OSTEOPOROSIS
     Dosage: 50 MG, QD
     Route: 048

REACTIONS (2)
  - DYSPNOEA [None]
  - CHEST DISCOMFORT [None]
